FAERS Safety Report 6165514-5 (Version None)
Quarter: 2009Q2

REPORT INFORMATION
  Report Type: 
  Country: None (occurrence: None)
  Receive Date: 20090423
  Receipt Date: 20090420
  Transmission Date: 20091009
  Serious: Yes (Other)
  Sender: FDA-Public Use
  Company Number: US-ASTRAZENECA-2007UW01729

PATIENT
  Age: 11731 Day
  Sex: Female
  Weight: 113.9 kg

DRUGS (12)
  1. SEROQUEL [Suspect]
     Indication: BIPOLAR DISORDER
     Route: 048
     Dates: start: 19971201, end: 20080101
  2. SEROQUEL [Suspect]
     Indication: SLEEP DISORDER
     Route: 048
     Dates: start: 19971201, end: 20080101
  3. PROZAC [Concomitant]
  4. NEXIUM [Concomitant]
  5. ABILIFY [Concomitant]
  6. LIPITOR [Concomitant]
     Dosage: TWO TIMES A DAY
  7. METOPROLOL SUCCINATE [Concomitant]
  8. LISINOPRIL [Concomitant]
  9. ASPIRIN [Concomitant]
  10. KEPPRA [Concomitant]
     Dosage: TWO TIMES A DAY
  11. HUMULIN 70/30 [Concomitant]
  12. TEGRETOL [Concomitant]
     Dosage: TWO TIMES A DAY

REACTIONS (5)
  - CARDIOMEGALY [None]
  - CONVULSION [None]
  - DIABETIC KETOACIDOSIS [None]
  - MALAISE [None]
  - TYPE 2 DIABETES MELLITUS [None]
